FAERS Safety Report 12177900 (Version 1)
Quarter: 2016Q1

REPORT INFORMATION
  Report Type: Spontaneous
  Country: US (occurrence: None)
  Receive Date: 20160314
  Receipt Date: 20160314
  Transmission Date: 20160526
  Serious: No
  Sender: FDA-Public Use
  Company Number: None

PATIENT
  Age: 27 Year
  Sex: Female
  Weight: 59.42 kg

DRUGS (1)
  1. CLONAZEPAM 1MG ACTAVIS [Suspect]
     Active Substance: CLONAZEPAM
     Indication: ANXIETY DISORDER
     Dosage: 1 MG ONE IN AM ONE @ H.S. ORAL
     Route: 048
     Dates: start: 20160218, end: 20160301

REACTIONS (6)
  - Heart rate increased [None]
  - Irritability [None]
  - Panic attack [None]
  - Product substitution issue [None]
  - Hyperhidrosis [None]
  - Poor quality sleep [None]
